FAERS Safety Report 5170831-1 (Version None)
Quarter: 2006Q4

REPORT INFORMATION
  Report Type: 
  Country: None (occurrence: None)
  Receive Date: 20061213
  Receipt Date: 20061203
  Transmission Date: 20070319
  Serious: Yes (Hospitalization)
  Sender: FDA-Public Use
  Company Number: 2006UW26963

PATIENT
  Age: 35 Year
  Sex: Female

DRUGS (4)
  1. NEXIUM [Suspect]
     Route: 048
     Dates: start: 20061127
  2. ZOLOFT [Concomitant]
  3. CLONAZEPAM [Concomitant]
  4. XANAX [Concomitant]

REACTIONS (3)
  - CHOKING [None]
  - DYSPEPSIA [None]
  - VOMITING [None]
